FAERS Safety Report 7718752-1 (Version None)
Quarter: 2011Q3

REPORT INFORMATION
  Report Type: 
  Country: None (occurrence: None)
  Receive Date: 20110830
  Receipt Date: 20110819
  Transmission Date: 20111222
  Serious: Yes (Hospitalization)
  Sender: FDA-Public Use
  Company Number: US-BAYER-2011-022488

PATIENT
  Age: 39 Year
  Sex: Female
  Weight: 104.31 kg

DRUGS (5)
  1. NSAID'S [Concomitant]
  2. CLONIDINE [Concomitant]
     Indication: HYPERTENSION
     Dosage: 0.2 MG, UNK
     Dates: start: 20070720
  3. BUTALBITAL/ASA/CAFFEINE/CODEINE [Concomitant]
     Dosage: UNK
     Dates: start: 20051101, end: 20100201
  4. YAZ [Suspect]
     Dosage: UNK, QD
     Route: 048
     Dates: start: 20070711, end: 20070809
  5. ALLEGRA [Concomitant]
     Indication: MULTIPLE ALLERGIES
     Dosage: UNK
     Dates: start: 20060101

REACTIONS (7)
  - FEAR OF DISEASE [None]
  - PULMONARY EMBOLISM [None]
  - INJURY [None]
  - WHEEZING [None]
  - EMOTIONAL DISTRESS [None]
  - ANXIETY [None]
  - PAIN [None]
